FAERS Safety Report 22995654 (Version 5)
Quarter: 2023Q4

REPORT INFORMATION
  Report Type: Spontaneous
  Country: US (occurrence: US)
  Receive Date: 20230927
  Receipt Date: 20231023
  Transmission Date: 20240109
  Serious: Yes (Other)
  Sender: FDA-Public Use
  Company Number: US-PFIZER INC-202300310824

PATIENT
  Age: 43 Year
  Sex: Female
  Weight: 63.5 kg

DRUGS (5)
  1. LORBRENA [Suspect]
     Active Substance: LORLATINIB
     Indication: Lung neoplasm malignant
     Dosage: 100 MG, 1X/DAY
     Route: 048
     Dates: start: 2018
  2. LORBRENA [Suspect]
     Active Substance: LORLATINIB
     Dosage: 50 MG, 1X/DAY
     Dates: start: 2019, end: 2021
  3. LORBRENA [Suspect]
     Active Substance: LORLATINIB
     Dosage: 25 MG, 1X/DAY
     Dates: start: 202202
  4. LORBRENA [Suspect]
     Active Substance: LORLATINIB
     Dosage: 50 MG, DAILY (TWO 25MG TABLETS ONCE A DAY)
     Route: 048
     Dates: start: 202309
  5. LORBRENA [Suspect]
     Active Substance: LORLATINIB
     Dosage: 50 MG, 1X/DAY, [TAKES TWO 25MG TABLETS ONCE A DAY BY MOUTH.]
     Route: 048

REACTIONS (4)
  - Blood cholesterol increased [Unknown]
  - Neoplasm progression [Unknown]
  - Hepatic enzyme increased [Unknown]
  - Off label use [Unknown]

NARRATIVE: CASE EVENT DATE: 20180101
